FAERS Safety Report 9009094 (Version 1)
Quarter: 2013Q1

REPORT INFORMATION
  Report Type: Spontaneous
  Country: FR (occurrence: FR)
  Receive Date: 20130111
  Receipt Date: 20130111
  Transmission Date: 20140127
  Serious: Yes (Death, Other)
  Sender: FDA-Public Use
  Company Number: FR-AMGEN-FRASP2013000375

PATIENT
  Age: 72 Year
  Sex: Female

DRUGS (2)
  1. NEULASTA [Suspect]
     Indication: B-CELL LYMPHOMA
     Dosage: UNK
  2. CHEMOTHERAPEUTICS [Concomitant]
     Indication: B-CELL LYMPHOMA
     Dosage: UNK

REACTIONS (2)
  - Septic shock [Fatal]
  - Febrile neutropenia [Unknown]
